FAERS Safety Report 5854636-1 (Version None)
Quarter: 2008Q3

REPORT INFORMATION
  Report Type: 
  Country: None (occurrence: None)
  Receive Date: 20080822
  Receipt Date: 20071107
  Transmission Date: 20090109
  Serious: No
  Sender: FDA-Public Use
  Company Number: US-ABBOTT-07P-163-0424134-00

PATIENT
  Sex: Female

DRUGS (3)
  1. SYNTHROID [Suspect]
     Indication: DRUG USE FOR UNKNOWN INDICATION
     Route: 048
  2. SYNTHROID [Suspect]
     Route: 048
  3. SYNTHROID [Suspect]
     Dosage: SOLN
     Route: 048

REACTIONS (8)
  - ANXIETY [None]
  - DEPRESSION [None]
  - FATIGUE [None]
  - FEELING ABNORMAL [None]
  - HEADACHE [None]
  - MENTAL IMPAIRMENT [None]
  - PALPITATIONS [None]
  - RESPIRATORY DISORDER [None]
